FAERS Safety Report 13017479 (Version 2)
Quarter: 2016Q4

REPORT INFORMATION
  Report Type: Spontaneous
  Country: JP (occurrence: JP)
  Receive Date: 20161212
  Receipt Date: 20161227
  Transmission Date: 20170207
  Serious: Yes (Other)
  Sender: FDA-Public Use
  Company Number: JP-SA-2016SA223902

PATIENT
  Age: 29 Year
  Sex: Female
  Weight: 52 kg

DRUGS (12)
  1. ISODINE [Concomitant]
     Active Substance: POVIDONE-IODINE
     Dosage: MOUTH WASH
     Route: 065
     Dates: start: 20120309
  2. HUMALOG [Concomitant]
     Active Substance: INSULIN LISPRO
     Route: 065
     Dates: start: 20120420
  3. TACROLIMUS. [Suspect]
     Active Substance: TACROLIMUS
     Indication: LUPUS NEPHRITIS
     Route: 048
     Dates: start: 20120316
  4. BAYASPIRIN [Concomitant]
     Active Substance: ASPIRIN
     Route: 065
     Dates: start: 20120204
  5. FUNGIZONE [Concomitant]
     Active Substance: AMPHOTERICIN B
     Dosage: MOUTH WASH
     Route: 065
     Dates: start: 20120309
  6. UTEMERIN [Concomitant]
     Active Substance: RITODRINE
     Route: 065
     Dates: start: 20120703
  7. UTEMERIN [Concomitant]
     Active Substance: RITODRINE
     Route: 065
     Dates: end: 20150712
  8. MAGLAX [Concomitant]
     Active Substance: MAGNESIUM OXIDE
     Route: 065
     Dates: start: 20120327
  9. TACROLIMUS. [Suspect]
     Active Substance: TACROLIMUS
     Indication: SYSTEMIC LUPUS ERYTHEMATOSUS
     Route: 048
     Dates: start: 20120316
  10. PREDNISOLONE. [Concomitant]
     Active Substance: PREDNISOLONE
     Route: 065
     Dates: start: 2005
  11. HEPARIN SODIUM. [Concomitant]
     Active Substance: HEPARIN SODIUM
     Route: 065
     Dates: start: 20120204
  12. MYSLEE [Suspect]
     Active Substance: ZOLPIDEM TARTRATE
     Indication: INSOMNIA
     Route: 048
     Dates: start: 20120312

REACTIONS (4)
  - Maternal exposure during pregnancy [Unknown]
  - Constipation [Recovering/Resolving]
  - Placental insufficiency [Recovered/Resolved]
  - Premature labour [Recovered/Resolved]

NARRATIVE: CASE EVENT DATE: 20120622
